FAERS Safety Report 6094930-5 (Version None)
Quarter: 2009Q1

REPORT INFORMATION
  Report Type: 
  Country: None (occurrence: None)
  Receive Date: 20090225
  Receipt Date: 20090213
  Transmission Date: 20090719
  Serious: Yes (Hospitalization)
  Sender: FDA-Public Use
  Company Number: ADR0542009

PATIENT
  Age: 75 Year
  Sex: Female

DRUGS (5)
  1. VYTORIN [Suspect]
     Indication: HYPERCHOLESTEROLAEMIA
  2. ERLOTINIB [Suspect]
  3. ACETYLSALICYLIC ACID SRT [Concomitant]
  4. ATENOLOL [Concomitant]
  5. AMLODIPINE [Concomitant]

REACTIONS (3)
  - DRUG INTERACTION [None]
  - HYPERBILIRUBINAEMIA [None]
  - RHABDOMYOLYSIS [None]
